FAERS Safety Report 10172862 (Version 1)
Quarter: 2014Q2

REPORT INFORMATION
  Report Type: Spontaneous
  Country: US (occurrence: None)
  Receive Date: 20140514
  Receipt Date: 20140514
  Transmission Date: 20141212
  Serious: Yes (Other)
  Sender: FDA-Public Use
  Company Number: None

PATIENT
  Age: 54 Year
  Sex: Female
  Weight: 75.75 kg

DRUGS (4)
  1. GEMCITABINE [Suspect]
     Indication: BREAST CANCER METASTATIC
     Dosage: 1850 MG, DAY 1 AND 8 Q21 D, INTRAVENOUS
     Route: 042
     Dates: start: 20140508, end: 20140508
  2. CARBOPLATIN [Concomitant]
  3. GRANISETRON [Concomitant]
  4. DEXAMETHASONE [Concomitant]

REACTIONS (2)
  - Back pain [None]
  - Body temperature increased [None]
